FAERS Safety Report 5114950-4 (Version None)
Quarter: 2006Q3

REPORT INFORMATION
  Report Type: 
  Country: None (occurrence: None)
  Receive Date: 20060925
  Receipt Date: 20060925
  Transmission Date: 20061208
  Serious: Yes (Life-Threatening, Hospitalization)
  Sender: FDA-Public Use
  Company Number: None

PATIENT
  Sex: Female
  Weight: 121 kg

DRUGS (10)
  1. CAPECITABINE - ROCHE LABORATORIES [Suspect]
     Indication: COLON CANCER METASTATIC
     Dosage: 1500 MG/M2 BID X 7 DAYS PO
     Route: 048
     Dates: start: 20060526, end: 20060810
  2. IRINOTECAN HCL [Suspect]
     Indication: COLON CANCER METASTATIC
     Dosage: 180 MG /M2 EVERY 4 WEEKS IV
     Route: 042
     Dates: start: 20060526, end: 20060721
  3. CALCIUM GLUCONATE [Concomitant]
  4. GRANISETRON [Concomitant]
  5. FLEXERIL [Concomitant]
  6. PROZAC [Concomitant]
  7. NEURONTIN [Concomitant]
  8. NEXIUM [Concomitant]
  9. LOMOTIL [Concomitant]
  10. XELODA [Concomitant]

REACTIONS (13)
  - ADRENAL INSUFFICIENCY [None]
  - CARDIAC DISORDER [None]
  - DEEP VEIN THROMBOSIS [None]
  - DYSPEPSIA [None]
  - EJECTION FRACTION DECREASED [None]
  - HAEMODIALYSIS [None]
  - HYPOTENSION [None]
  - LOSS OF CONSCIOUSNESS [None]
  - NEUROPATHY [None]
  - RENAL FAILURE ACUTE [None]
  - RENAL TUBULAR NECROSIS [None]
  - RESPIRATORY DISORDER [None]
  - SEPTIC SHOCK [None]
